FAERS Safety Report 4297958-0 (Version None)
Quarter: 2004Q1

REPORT INFORMATION
  Report Type: 
  Country: None (occurrence: None)
  Receive Date: 20040126
  Receipt Date: 20031030
  Transmission Date: 20041129
  Serious: No
  Sender: FDA-Public Use
  Company Number: USA031051241

PATIENT
  Age: 15 Year
  Sex: Male
  Weight: 53 kg

DRUGS (2)
  1. STRATTERA [Suspect]
     Indication: ATTENTION DEFICIT/HYPERACTIVITY DISORDER
     Dosage: 60 MG/DAY
     Dates: start: 20031025
  2. CONCERTA [Concomitant]

REACTIONS (3)
  - FATIGUE [None]
  - INCREASED APPETITE [None]
  - SOMNOLENCE [None]
